FAERS Safety Report 7807992-9 (Version None)
Quarter: 2011Q4

REPORT INFORMATION
  Report Type: 
  Country: None (occurrence: None)
  Receive Date: 20111011
  Receipt Date: 20111011
  Transmission Date: 20120403
  Serious: Yes (Life-Threatening, Hospitalization)
  Sender: FDA-Public Use
  Company Number: None

PATIENT
  Age: 85 Year
  Sex: Female
  Weight: 53.977 kg

DRUGS (16)
  1. CODEINE PHOSPHATE AND ACETAMINOPHEN [Concomitant]
  2. VERAPAMIL EXTENDED-RELEASE [Concomitant]
     Route: 048
  3. DOCUSATE [Concomitant]
     Route: 048
  4. FLUOROURACIL [Suspect]
     Dosage: 1190MG
     Route: 042
     Dates: start: 20110722, end: 20110725
  5. ATORVASTATIN [Concomitant]
     Route: 048
  6. FLUOROURACIL [Concomitant]
     Route: 042
  7. PROCHLORPERAZINE [Concomitant]
     Route: 048
  8. MIRALAX 3350 [Concomitant]
     Route: 048
  9. HEPARIN [Concomitant]
     Route: 058
  10. DEXAMETHASONE [Concomitant]
     Route: 048
  11. AMLODIPINE [Concomitant]
     Route: 048
  12. LORAZEPAM [Concomitant]
     Route: 048
  13. MORPHINE SULFATE [Concomitant]
     Route: 048
  14. VITAMIN B COMPLEX CAP [Concomitant]
     Route: 048
  15. COD LIVER OIL [Concomitant]
     Route: 048
  16. VITAMIN-MINERAL COMPOUND TAB [Concomitant]
     Route: 048

REACTIONS (6)
  - VULVAL CANCER STAGE II [None]
  - ANAL CANCER [None]
  - LYMPHADENOPATHY [None]
  - PULMONARY OEDEMA [None]
  - VULVAL HAEMORRHAGE [None]
  - CHEST PAIN [None]
